FAERS Safety Report 15753810 (Version 2)
Quarter: 2019Q1

REPORT INFORMATION
  Report Type: Report from Study
  Country: US (occurrence: US)
  Receive Date: 20181222
  Receipt Date: 20190221
  Transmission Date: 20190417
  Serious: Yes (Other)
  Sender: FDA-Public Use
  Company Number: US-TEVA-2018-US-989981

PATIENT
  Age: 35 Year
  Sex: Male

DRUGS (6)
  1. TRIHEXYPHENIDYL [Concomitant]
     Active Substance: TRIHEXYPHENIDYL
     Dosage: 4 MILLIGRAM DAILY;
  2. PREGABALIN. [Concomitant]
     Active Substance: PREGABALIN
     Dosage: 400 MILLIGRAM DAILY;
  3. CLOZAPINE TEVA [Suspect]
     Active Substance: CLOZAPINE
     Dates: start: 201812
  4. MIRTAZAPINE. [Concomitant]
     Active Substance: MIRTAZAPINE
  5. FLUOXETINE [Concomitant]
     Active Substance: FLUOXETINE HYDROCHLORIDE
     Dosage: 80 MILLIGRAM DAILY;
  6. CLOZAPINE TEVA [Suspect]
     Active Substance: CLOZAPINE
     Route: 048
     Dates: end: 20181212

REACTIONS (1)
  - Granulocytopenia [Recovered/Resolved]

NARRATIVE: CASE EVENT DATE: 20181212
